FAERS Safety Report 19161655 (Version 1)
Quarter: 2021Q2

REPORT INFORMATION
  Report Type: Report from Study
  Country: None (occurrence: AT)
  Receive Date: 20210421
  Receipt Date: 20210421
  Transmission Date: 20210717
  Serious: Yes (Death)
  Sender: FDA-Public Use
  Company Number: AT-ABBVIE-21K-009-3867996-00

PATIENT
  Sex: Female

DRUGS (2)
  1. DUODOPA [Suspect]
     Active Substance: CARBIDOPA\LEVODOPA
  2. DUODOPA [Suspect]
     Active Substance: CARBIDOPA\LEVODOPA
     Indication: PARKINSON^S DISEASE
     Dosage: 24 HR THERAPY: MD: 5ML, CR DAYTIME: 2.8ML/H, CR NIGHTTIME: 1.8ML/H, ED: 2.8ML.
     Route: 050
     Dates: start: 20101206

REACTIONS (2)
  - Pneumonia [Fatal]
  - Asthenia [Fatal]
